FAERS Safety Report 7345759-9 (Version None)
Quarter: 2011Q1

REPORT INFORMATION
  Report Type: 
  Country: None (occurrence: None)
  Receive Date: 20110311
  Receipt Date: 20110303
  Transmission Date: 20110831
  Serious: Yes (Hospitalization)
  Sender: FDA-Public Use
  Company Number: US-BIOGENIDEC-2010BI010074

PATIENT
  Age: 70 Year
  Sex: Female

DRUGS (3)
  1. TYSABRI [Suspect]
     Route: 042
     Dates: start: 20070720, end: 20071120
  2. TYSABRI [Suspect]
     Indication: MULTIPLE SCLEROSIS
     Route: 042
     Dates: start: 20050221, end: 20050201
  3. TYSABRI [Suspect]
     Route: 042
     Dates: start: 20080304

REACTIONS (5)
  - DRUG INEFFECTIVE [None]
  - PAIN [None]
  - HYPERHIDROSIS [None]
  - CARDIAC STRESS TEST ABNORMAL [None]
  - FATIGUE [None]
